FAERS Safety Report 9228030 (Version 2)
Quarter: 2013Q4

REPORT INFORMATION
  Report Type: Spontaneous
  Country: US (occurrence: None)
  Receive Date: 20121023
  Receipt Date: 20131226
  Transmission Date: 20140711
  Serious: Yes (Other)
  Sender: FDA-Public Use
  Company Number: PHEH2012US016540

PATIENT
  Age: 75 Year
  Sex: Female

DRUGS (4)
  1. VIVELLE DOT [Suspect]
     Indication: MENOPAUSE
     Dosage: 0.1 UKN,
     Route: 062
  2. ANTHISTAMINES (NO INGREDIENTS/SUBSTANCES) [Concomitant]
  3. XANAX (ALPRAZOLAM) [Concomitant]
  4. ASPIRIN (ACETYLSALICYLIC ACID) [Concomitant]

REACTIONS (8)
  - Depression [None]
  - Blood oestrogen decreased [None]
  - Drug withdrawal syndrome [None]
  - Hot flush [None]
  - Arthralgia [None]
  - Wrong technique in drug usage process [None]
  - Drug ineffective [None]
  - Application site rash [None]
